FAERS Safety Report 8222369-2 (Version None)
Quarter: 2012Q1

REPORT INFORMATION
  Report Type: 
  Country: None (occurrence: None)
  Receive Date: 20120316
  Receipt Date: 20110214
  Transmission Date: 20120608
  Serious: Yes (Hospitalization, Other)
  Sender: FDA-Public Use
  Company Number: PL-024907

PATIENT
  Age: 79 Year
  Sex: Male
  Weight: 64 kg

DRUGS (3)
  1. OFATUMUMAB (OFATUMUMAB) [Suspect]
     Indication: CHRONIC LYMPHOCYTIC LEUKAEMIA
     Dosage: 300MG DAY 1, 1000MG DAY 8 FOLLOWED BY 1000MG EVERY 28 DAYS INTRAVENOUS (NOT OTHERWISE SPECIFIED)
     Route: 042
     Dates: start: 20100330
  2. (CHLORAMBUCIL) [Suspect]
     Indication: CHRONIC LYMPHOCYTIC LEUKAEMIA
     Dosage: 10 MG/M2, 10MGM2 DAYS 1-7 EVERY 28 DAYS ORAL
     Route: 048
     Dates: start: 20100330
  3. DICLOFENAC SODIUM [Suspect]
     Indication: ANALGESIC THERAPY
     Dosage: 75 MG QD INTRAMUSCULAR 1 WEEK 2 DAYS
     Route: 030
     Dates: start: 20101218, end: 20101226

REACTIONS (5)
  - FATIGUE [None]
  - RADICULITIS [None]
  - SERUM FERRITIN DECREASED [None]
  - ACTIVITIES OF DAILY LIVING IMPAIRED [None]
  - GASTRIC HAEMORRHAGE [None]
